FAERS Safety Report 25444999 (Version 1)
Quarter: 2025Q2

REPORT INFORMATION
  Report Type: Spontaneous
  Country: LV (occurrence: LV)
  Receive Date: 20250617
  Receipt Date: 20250617
  Transmission Date: 20250716
  Serious: Yes (Hospitalization)
  Sender: RANBAXY
  Company Number: LV-SUN PHARMACEUTICAL INDUSTRIES INC-2025RR-512353

PATIENT
  Age: 91 Year
  Sex: Female

DRUGS (2)
  1. OLANZAPINE [Suspect]
     Active Substance: OLANZAPINE
     Indication: Hallucination
     Dosage: 5 MILLIGRAM, DAILY
     Route: 048
  2. HALOPERIDOL [Suspect]
     Active Substance: HALOPERIDOL
     Indication: Hallucination
     Dosage: 0.5 MILLIGRAM, BID
     Route: 065

REACTIONS (4)
  - Drug hypersensitivity [Unknown]
  - Muscle rigidity [Unknown]
  - Somnolence [Unknown]
  - Social avoidant behaviour [Unknown]
